FAERS Safety Report 5528627-4 (Version None)
Quarter: 2007Q4

REPORT INFORMATION
  Report Type: 
  Country: None (occurrence: None)
  Receive Date: 20071109
  Receipt Date: 20070423
  Transmission Date: 20080405
  Serious: Yes (Other)
  Sender: FDA-Public Use
  Company Number: PHEH2007US05987

PATIENT
  Age: 55 Year
  Sex: Female

DRUGS (15)
  1. ESTRADERM [Suspect]
     Indication: MENOPAUSE
     Dosage: 0.05 MG, TRANSDERMAL
     Route: 062
     Dates: start: 19930101, end: 19930101
  2. PREMPRO [Suspect]
     Indication: MENOPAUSE
     Dosage: 0.625/2.5 MG, ORAL
     Route: 048
     Dates: start: 19990101, end: 20010101
  3. PREMARIN [Suspect]
     Indication: MENOPAUSE
     Dosage: 0.625 MG/.9 MG INTERMITTENT THRU THE YEARS, ORAL
     Route: 048
     Dates: start: 19900701, end: 19990601
  4. CLIMARA [Suspect]
     Indication: MENOPAUSE
     Dosage: 0.05 MG, ORAL
     Route: 048
     Dates: start: 19950101, end: 19950101
  5. PROVERA [Suspect]
     Indication: MENOPAUSE
     Dosage: 2.5 MG, ORAL
     Route: 048
     Dates: start: 19900702, end: 19990102
  6. ESTRACE [Suspect]
     Indication: MENOPAUSE
     Dosage: 1 MG, ORAL
     Route: 048
     Dates: start: 19921218, end: 19960812
  7. OGEN [Suspect]
     Indication: MENOPAUSE
     Dosage: 0.625 MG, ORAL
     Route: 048
     Dates: start: 19950101, end: 19950101
  8. CYCRIN [Suspect]
     Indication: MENOPAUSE
     Dosage: 2.5 MG, ORAL ;
     Route: 048
     Dates: start: 19960101
  9. CYCRIN [Suspect]
     Indication: MENOPAUSE
     Dosage: 2.5 MG, ORAL ;
     Route: 048
     Dates: start: 19990101
  10. PROMETRIUM [Suspect]
     Indication: MENOPAUSE
     Dosage: 100 MG, ORAL
     Route: 048
     Dates: start: 19990101, end: 19990101
  11. PREMPHASE (PREMARIN;CYCRIN 14/14) [Suspect]
     Indication: MENOPAUSE
     Dosage: 0.625/5 MG, ORAL
     Route: 048
     Dates: start: 19970101, end: 19970101
  12. PREMPHASE (PREMARIN;CYCRIN 14/14) [Suspect]
     Indication: MENOPAUSE
     Dosage: 0.625/5 MG, ORAL
     Route: 048
     Dates: start: 19990101, end: 19990101
  13. PREMPHASE (PREMARIN;CYCRIN 14/14) [Suspect]
     Indication: MENOPAUSE
     Dosage: 0.625/5 MG, ORAL
     Route: 048
     Dates: start: 20000101, end: 20000101
  14. ESTRATEST H.S. [Suspect]
     Indication: MENOPAUSE
     Dosage: ORAL
     Route: 048
     Dates: start: 19931213
  15. SYNTHROID [Concomitant]

REACTIONS (11)
  - BIOPSY BREAST ABNORMAL [None]
  - BREAST CANCER FEMALE [None]
  - BREAST CYST [None]
  - BREAST MASS [None]
  - DEPRESSED MOOD [None]
  - DEPRESSION [None]
  - ENDOMETRIAL HYPERPLASIA [None]
  - FATIGUE [None]
  - MAMMOGRAM ABNORMAL [None]
  - MASTECTOMY [None]
  - METRORRHAGIA [None]
